FAERS Safety Report 8948173 (Version 2)
Quarter: 2013Q1

REPORT INFORMATION
  Report Type: Spontaneous
  Country: US (occurrence: US)
  Receive Date: 20121204
  Receipt Date: 20130117
  Transmission Date: 20140127
  Serious: No
  Sender: FDA-Public Use
  Company Number: US-PFIZER INC-2012303793

PATIENT
  Age: 86 Year
  Sex: Male
  Weight: 99.77 kg

DRUGS (8)
  1. TOVIAZ [Suspect]
     Indication: URINARY INCONTINENCE
     Dosage: 8 MG, DAILY
     Route: 048
     Dates: start: 201211
  2. TOVIAZ [Suspect]
     Indication: POLLAKIURIA
  3. PLAVIX [Concomitant]
     Dosage: UNK
  4. LASIX [Concomitant]
     Dosage: UNK
  5. CADUET [Concomitant]
     Dosage: UNK
  6. LISINOPRIL [Concomitant]
     Dosage: UNK
  7. NIASPAN [Concomitant]
     Dosage: UNK
  8. HYDROCODONE [Concomitant]
     Indication: BACK DISORDER
     Dosage: UNK

REACTIONS (3)
  - Joint swelling [Not Recovered/Not Resolved]
  - Dry mouth [Unknown]
  - Constipation [Unknown]
